FAERS Safety Report 8863039 (Version 1)
Quarter: 2012Q4

REPORT INFORMATION
  Report Type: 
  Country: US (occurrence: US)
  Receive Date: 20121026
  Receipt Date: 20121026
  Transmission Date: 20130627
  Serious: Yes (Other)
  Sender: FDA-Public Use
  Company Number: US-ELI_LILLY_AND_COMPANY-US201210005375

PATIENT
  Age: 29 Year
  Sex: Female

DRUGS (2)
  1. CYMBALTA [Suspect]
     Indication: DEPRESSION
     Dosage: 20 mg, UNK
     Dates: start: 201207
  2. ABILIFY [Concomitant]
     Dosage: UNK, unknown

REACTIONS (2)
  - Road traffic accident [Unknown]
  - Jaw disorder [Unknown]
